FAERS Safety Report 8256490-X (Version None)
Quarter: 2012Q2

REPORT INFORMATION
  Report Type: 
  Country: None (occurrence: None)
  Receive Date: 20120403
  Receipt Date: 20120321
  Transmission Date: 20120825
  Serious: Yes (Hospitalization, Other)
  Sender: FDA-Public Use
  Company Number: CHPA2012US005571

PATIENT
  Age: 57 Year
  Sex: Male

DRUGS (2)
  1. CALCIUM CARBONATE [Suspect]
     Indication: DYSPEPSIA
     Dosage: UNK, QD
     Route: 048
  2. IBUPROFEN (ADVIL) [Concomitant]

REACTIONS (2)
  - COLON CANCER [None]
  - INCORRECT DRUG ADMINISTRATION DURATION [None]
